FAERS Safety Report 11617790 (Version 1)
Quarter: 2015Q4

REPORT INFORMATION
  Report Type: Report from Study
  Country: DE (occurrence: DE)
  Receive Date: 20151009
  Receipt Date: 20151009
  Transmission Date: 20160304
  Serious: Yes (Life-Threatening, Other)
  Sender: FDA-Public Use
  Company Number: DE-ABBVIE-15P-062-1476065-00

PATIENT
  Age: 64 Year
  Sex: Male

DRUGS (1)
  1. KALETRA [Suspect]
     Active Substance: LOPINAVIR\RITONAVIR
     Indication: HIV INFECTION
     Route: 048
     Dates: start: 20130715

REACTIONS (4)
  - Gastrointestinal infection [Unknown]
  - Diarrhoea [Unknown]
  - Cerebral infarction [Unknown]
  - Burkitt^s lymphoma [Unknown]

NARRATIVE: CASE EVENT DATE: 20131227
